FAERS Safety Report 17640683 (Version 1)
Quarter: 2020Q2

REPORT INFORMATION
  Report Type: Report from Study
  Country: TR (occurrence: TR)
  Receive Date: 20200407
  Receipt Date: 20200407
  Transmission Date: 20200713
  Serious: Yes (Hospitalization)
  Sender: FDA-Public Use
  Company Number: TR-TEVA-2020-TR-1218277

PATIENT
  Age: 42 Year
  Sex: Male

DRUGS (1)
  1. SILDENAFIL. [Suspect]
     Active Substance: SILDENAFIL
     Indication: ERECTILE DYSFUNCTION
     Dosage: HAD TAKEN A SINGLE 100 MG PILL.
     Route: 065

REACTIONS (4)
  - Photophobia [Recovered/Resolved]
  - Prescription drug used without a prescription [Unknown]
  - Visual impairment [Recovered/Resolved]
  - Mydriasis [Recovered/Resolved]
